FAERS Safety Report 4295416-0 (Version None)
Quarter: 2004Q1

REPORT INFORMATION
  Report Type: 
  Country: None (occurrence: None)
  Receive Date: 20040212
  Receipt Date: 20031111
  Transmission Date: 20041129
  Serious: Yes (Hospitalization)
  Sender: FDA-Public Use
  Company Number: A01200305334

PATIENT
  Age: 63 Year
  Sex: Male

DRUGS (8)
  1. PLAVIX [Suspect]
     Indication: ANGIOPLASTY
     Dosage: 75 MG OD, ORAL
     Route: 048
     Dates: start: 20031011, end: 20031022
  2. SELOKEN (METOPROLOL SUCCINATE) [Concomitant]
  3. RAMIPRIL [Concomitant]
  4. ZOCOR [Concomitant]
  5. ASCAL (ACETYLSALICYLATE CALCIUM) [Concomitant]
  6. PANTOZOL (PANTOPRAZOLE SODIUM) [Concomitant]
  7. FERRO GRADUMET (FERROUS SULFATE) [Concomitant]
  8. LEXOTANIL (BROMAZEPAM) [Concomitant]

REACTIONS (10)
  - GINGIVAL BLEEDING [None]
  - HAEMATOMA [None]
  - OEDEMA MOUTH [None]
  - OROPHARYNGEAL SWELLING [None]
  - PHARYNGOLARYNGEAL PAIN [None]
  - PYREXIA [None]
  - SWELLING FACE [None]
  - SWOLLEN TONGUE [None]
  - THROMBOCYTOPENIA [None]
  - VASCULITIS NECROTISING [None]
